FAERS Safety Report 9837760 (Version 1)
Quarter: 2014Q1

REPORT INFORMATION
  Report Type: Spontaneous
  Country: ES (occurrence: ES)
  Receive Date: 20140123
  Receipt Date: 20140123
  Transmission Date: 20141002
  Serious: Yes (Hospitalization)
  Sender: FDA-Public Use
  Company Number: ES-SA-2014SA006823

PATIENT
  Age: 66 Year
  Sex: Male

DRUGS (6)
  1. DAONIL [Suspect]
     Indication: DIABETES MELLITUS
     Route: 048
     Dates: end: 20131201
  2. METFORMIN [Interacting]
     Indication: DIABETES MELLITUS
     Route: 048
     Dates: end: 20131201
  3. ENALAPRIL [Interacting]
     Indication: HYPERTENSION
     Route: 048
     Dates: end: 20131201
  4. AMOXICILINA + CLAVULANICO [Concomitant]
     Route: 048
     Dates: start: 20131119, end: 20131129
  5. BISOPROLOL [Concomitant]
     Route: 048
     Dates: end: 20131201
  6. ATORVASTATIN [Concomitant]
     Indication: HYPERLIPIDAEMIA
     Route: 048
     Dates: end: 20131201

REACTIONS (3)
  - Hyperkalaemia [Recovered/Resolved]
  - Drug interaction [Unknown]
  - Lactic acidosis [Recovered/Resolved]
